FAERS Safety Report 10032401 (Version 1)
Quarter: 2014Q1

REPORT INFORMATION
  Report Type: Spontaneous
  Country: FR (occurrence: None)
  Receive Date: 20140320
  Receipt Date: 20140320
  Transmission Date: 20141002
  Serious: Yes (Hospitalization)
  Sender: FDA-Public Use
  Company Number: FK201400819

PATIENT
  Age: 39 Year
  Sex: Female

DRUGS (7)
  1. CLINDAMYCIN [Suspect]
     Indication: PRODUCT USED FOR UNKNOWN INDICATION
     Dates: start: 20131024, end: 20131024
  2. PROPOFOL (PROPOFOL) [Concomitant]
  3. TACRIUM (ATRACURIUM BESILATE) [Concomitant]
  4. TOPALGIC (TRAMADOL HYDROCHLORIDE) [Concomitant]
  5. ONDANSETRON (ONDANSETRON) [Concomitant]
  6. PARACETAMOL (PARACETAMOL) [Concomitant]
  7. ALGOSTERIL (CALCIUM ALGINATE) [Concomitant]

REACTIONS (3)
  - Acute generalised exanthematous pustulosis [None]
  - Cytomegalovirus test positive [None]
  - Epstein-Barr virus test positive [None]
